FAERS Safety Report 20087644 (Version 1)
Quarter: 2021Q4

REPORT INFORMATION
  Report Type: Spontaneous
  Country: CN (occurrence: CN)
  Receive Date: 20211118
  Receipt Date: 20211118
  Transmission Date: 20220303
  Serious: No
  Sender: FDA-Public Use
  Company Number: CN-ELI_LILLY_AND_COMPANY-CN202111004580

PATIENT
  Age: 35 Year
  Sex: Male
  Weight: 70 kg

DRUGS (1)
  1. CIALIS [Suspect]
     Active Substance: TADALAFIL
     Indication: Erectile dysfunction
     Dosage: 10 MG, OTHER (5MG 2 TABLETS HALF AN HOUR IN ADVANCE)
     Route: 048
     Dates: start: 20211109

REACTIONS (2)
  - Eye swelling [Recovering/Resolving]
  - Swelling of eyelid [Recovering/Resolving]
